FAERS Safety Report 24082436 (Version 1)
Quarter: 2024Q3

REPORT INFORMATION
  Report Type: Spontaneous
  Country: EG (occurrence: EG)
  Receive Date: 20240712
  Receipt Date: 20240712
  Transmission Date: 20241016
  Serious: Yes (Other)
  Sender: AMGEN
  Company Number: EG-002147023-NVSC2024EG136224

PATIENT
  Age: 31 Year
  Sex: Male

DRUGS (1)
  1. AIMOVIG [Suspect]
     Active Substance: ERENUMAB-AOOE
     Indication: Migraine
     Dosage: 70 MG/ML, QMO
     Route: 058
     Dates: start: 202403

REACTIONS (4)
  - Product dose omission issue [Unknown]
  - Product quality issue [Unknown]
  - Device delivery system issue [Unknown]
  - Migraine [Unknown]

NARRATIVE: CASE EVENT DATE: 20240629
